FAERS Safety Report 8130969-3 (Version None)
Quarter: 2012Q1

REPORT INFORMATION
  Report Type: 
  Country: None (occurrence: None)
  Receive Date: 20120213
  Receipt Date: 20120207
  Transmission Date: 20120608
  Serious: No
  Sender: FDA-Public Use
  Company Number: US-PFIZER INC-2012009484

PATIENT
  Sex: Female

DRUGS (4)
  1. NEURONTIN [Suspect]
     Dosage: 800 MG, 3X/DAY
  2. ZOLOFT [Suspect]
     Indication: DEPRESSION
     Dosage: 100 MG, 2X/DAY
     Dates: start: 20080813
  3. ABILIFY [Suspect]
     Indication: WEIGHT INCREASED
     Dosage: 5 MG, DAILY
     Route: 048
     Dates: start: 20110701, end: 20111017
  4. NEURONTIN [Suspect]
     Indication: BACK PAIN
     Dosage: 800 MG, 2X/DAY
     Dates: start: 20070101

REACTIONS (2)
  - WEIGHT INCREASED [None]
  - ANXIETY [None]
